FAERS Safety Report 10233846 (Version 1)
Quarter: 2014Q1

REPORT INFORMATION
  Report Type: Spontaneous
  Country: US (occurrence: None)
  Receive Date: 20140306
  Receipt Date: 20140306
  Transmission Date: 20141002
  Serious: Yes (Hospitalization)
  Sender: FDA-Public Use
  Company Number: 163-21880-13113702

PATIENT
  Age: 64 Year
  Sex: Female

DRUGS (4)
  1. REVLIMID (LENALIDOMIDE) (CAPSULES) [Suspect]
     Indication: PLASMA CELL MYELOMA
     Dosage: 25 MG, 21 IN 21 D, PO
     Route: 048
     Dates: start: 20131028, end: 2013
  2. VITAMIN B COMPLEX (B-KOMPLEX ^LECIVA^) (UNKNOWN) [Concomitant]
  3. VITAMIN A + D (VITAMIDYNE A AND D) (UNKNOWN) [Concomitant]
  4. VITAMIN D3 (COLECALCIFEROL) (UNKNOWN) [Concomitant]

REACTIONS (2)
  - Decreased appetite [None]
  - Dehydration [None]
